FAERS Safety Report 12053314 (Version 1)
Quarter: 2016Q1

REPORT INFORMATION
  Report Type: Spontaneous
  Country: US (occurrence: US)
  Receive Date: 20160209
  Receipt Date: 20160209
  Transmission Date: 20160526
  Serious: No
  Sender: FDA-Public Use
  Company Number: US-ENDO PHARMACEUTICALS INC.-2015-003065

PATIENT
  Age: 51 Year
  Sex: Male
  Weight: 93.07 kg

DRUGS (2)
  1. TESTOSTERONE GEL [Suspect]
     Active Substance: TESTOSTERONE
     Indication: BLOOD TESTOSTERONE DECREASED
     Dates: start: 20150915
  2. TESTOSTERONE GEL [Suspect]
     Active Substance: TESTOSTERONE
     Dates: start: 20150908, end: 20150915

REACTIONS (2)
  - Drug administered at inappropriate site [Recovered/Resolved]
  - Drug ineffective [Not Recovered/Not Resolved]

NARRATIVE: CASE EVENT DATE: 201509
